FAERS Safety Report 5486743-X (Version None)
Quarter: 2007Q4

REPORT INFORMATION
  Report Type: 
  Country: None (occurrence: None)
  Receive Date: 20071012
  Receipt Date: 20071012
  Transmission Date: 20080405
  Serious: No
  Sender: FDA-Public Use
  Company Number: None

PATIENT
  Age: 49 Year
  Sex: Female

DRUGS (2)
  1. AVELOX [Suspect]
     Dosage: 400MG DAILY ORALLY
     Route: 048
  2. THERAFLU OVER THE COUNTER [Suspect]

REACTIONS (5)
  - ELECTROCARDIOGRAM QT PROLONGED [None]
  - HYPOAESTHESIA [None]
  - NECK PAIN [None]
  - PALPITATIONS [None]
  - VENTRICULAR EXTRASYSTOLES [None]
